FAERS Safety Report 6046989-9 (Version None)
Quarter: 2009Q1

REPORT INFORMATION
  Report Type: 
  Country: None (occurrence: None)
  Receive Date: 20090112
  Receipt Date: 20081231
  Transmission Date: 20090719
  Serious: Yes (Other)
  Sender: FDA-Public Use
  Company Number: AECAN200800289

PATIENT
  Age: 76 Year
  Sex: Male
  Weight: 84 kg

DRUGS (37)
  1. IMMUNE GLOBULIN INTRAVENOUS (HUMAN) [Suspect]
     Indication: GUILLAIN-BARRE SYNDROME
     Dosage: 30 GM; QD; IV
     Route: 042
     Dates: start: 20081118, end: 20081123
  2. IMMUNE GLOBULIN INTRAVENOUS (HUMAN) [Suspect]
  3. ACETAMINOPHEN [Concomitant]
  4. ASPIRIN [Concomitant]
  5. BISACODYL [Concomitant]
  6. CYANOCOBALAMIN [Concomitant]
  7. DIMENHYDRINATE [Concomitant]
  8. DOCUSATE SODIUM [Concomitant]
  9. EPOETIN ALFA [Concomitant]
  10. FENTANYL CITRATE [Concomitant]
  11. SODIUM PHOSPHATES [Concomitant]
  12. FOLIC ACID [Concomitant]
  13. HEPARIN [Concomitant]
  14. HYDROMORPHONE HYDROCHLORIDE [Concomitant]
  15. IMMUNE GLOBULIN INTRAVENOUS (HUMAN) [Concomitant]
  16. IPRATROPIUM BROMIDE [Concomitant]
  17. IRON SUCROSE [Concomitant]
  18. POTASSIUM CHLORIDE [Concomitant]
  19. LACTULOSE [Concomitant]
  20. LANSOPRAZOLE [Concomitant]
  21. MAGNESIUM SULFATE [Concomitant]
  22. MIDAZOLAM HCL [Concomitant]
  23. MORPHINE SULFATE [Concomitant]
  24. NALOXONE [Concomitant]
  25. NOREPINEPHRINE [Concomitant]
  26. PERCOCET [Concomitant]
  27. PROPOFOL [Concomitant]
  28. ALBUTEROL SULFATE [Concomitant]
  29. SENNA [Concomitant]
  30. SODIUM BICARBONATE [Concomitant]
  31. TAZOCIN [Concomitant]
  32. TERAZOSIN HYDROCHLORIDE [Concomitant]
  33. TINZAPARIN [Concomitant]
  34. VASOPRESSIN [Concomitant]
  35. VANCOMYCIN [Concomitant]
  36. VALSARTAN [Concomitant]
  37. MAGNESIUM HYDROXIDE TAB [Concomitant]

REACTIONS (3)
  - INFUSION RELATED REACTION [None]
  - MYELODYSPLASTIC SYNDROME [None]
  - SHOCK [None]
